FAERS Safety Report 23931901 (Version 3)
Quarter: 2024Q3

REPORT INFORMATION
  Report Type: Report from Study
  Country: US (occurrence: US)
  Receive Date: 20240603
  Receipt Date: 20240811
  Transmission Date: 20241017
  Serious: Yes (Other)
  Sender: ABBVIE
  Company Number: US-ABBVIE-5780425

PATIENT
  Sex: Female

DRUGS (3)
  1. RINVOQ [Suspect]
     Active Substance: UPADACITINIB
     Indication: Dermatitis atopic
     Dosage: 1 PILL
     Route: 048
     Dates: start: 20230508
  2. RINVOQ [Suspect]
     Active Substance: UPADACITINIB
     Indication: Dermatitis atopic
     Dosage: 1 PILL
     Route: 048
     Dates: start: 20240421, end: 20240611
  3. RINVOQ [Suspect]
     Active Substance: UPADACITINIB
     Indication: Dermatitis atopic
     Dosage: 2 RINVOQ PILLS PER DAY FOR 5 DAYS
     Route: 048
     Dates: start: 20240416, end: 20240421

REACTIONS (6)
  - Blindness [Not Recovered/Not Resolved]
  - Skin fissures [Unknown]
  - Skin discharge [Unknown]
  - Optic nerve injury [Not Recovered/Not Resolved]
  - Eczema [Not Recovered/Not Resolved]
  - Hypersensitivity [Not Recovered/Not Resolved]

NARRATIVE: CASE EVENT DATE: 20240101
